FAERS Safety Report 9118861 (Version 1)
Quarter: 2013Q1

REPORT INFORMATION
  Report Type: Spontaneous
  Country: BR (occurrence: BR)
  Receive Date: 20130226
  Receipt Date: 20130226
  Transmission Date: 20140127
  Serious: Yes (Other)
  Sender: FDA-Public Use
  Company Number: PHHY2013BR018374

PATIENT
  Sex: Female

DRUGS (2)
  1. FEMARA [Suspect]
     Indication: BREAST CANCER
     Dosage: UNK
     Dates: start: 201112
  2. TAMOXIFEN [Suspect]

REACTIONS (4)
  - Labyrinthitis [Not Recovered/Not Resolved]
  - Gait disturbance [Not Recovered/Not Resolved]
  - Tinnitus [Not Recovered/Not Resolved]
  - Wheezing [Not Recovered/Not Resolved]
